FAERS Safety Report 17682980 (Version 2)
Quarter: 2020Q2

REPORT INFORMATION
  Report Type: Spontaneous
  Country: US (occurrence: US)
  Receive Date: 20200420
  Receipt Date: 20200428
  Transmission Date: 20200714
  Serious: Yes (Other)
  Sender: FDA-Public Use
  Company Number: US-ASTRAZENECA-2018SF65269

PATIENT
  Age: 26819 Day
  Sex: Female

DRUGS (19)
  1. NEXIUM [Suspect]
     Active Substance: ESOMEPRAZOLE MAGNESIUM
     Dosage: FOR VARIOUS DATES AND YEARS BEGINNING IN AT LEAST 2005 THROUGH AT LEAST 2016
     Route: 048
     Dates: start: 2005, end: 2016
  2. TRAMADOL. [Concomitant]
     Active Substance: TRAMADOL
  3. NEXIUM [Suspect]
     Active Substance: ESOMEPRAZOLE MAGNESIUM
     Route: 048
     Dates: start: 20130718
  4. ENOXAPARIN SODIUM. [Concomitant]
     Active Substance: ENOXAPARIN SODIUM
  5. LISINOPRIL. [Concomitant]
     Active Substance: LISINOPRIL
  6. DEXILANT [Suspect]
     Active Substance: DEXLANSOPRAZOLE
     Dosage: 60.0MG UNKNOWN
     Route: 065
     Dates: start: 20130520
  7. GLUCOPHAGE XR [Concomitant]
     Active Substance: METFORMIN HYDROCHLORIDE
  8. LANTUS [Concomitant]
     Active Substance: INSULIN GLARGINE
  9. GLUCOTROL [Concomitant]
     Active Substance: GLIPIZIDE
  10. DEXILANT [Suspect]
     Active Substance: DEXLANSOPRAZOLE
     Dosage: FOR VARIOUS DATES AND YEARS BEGINNING IN AT LEAST 2005 THROUGH AT LEAST 2016
     Route: 065
     Dates: start: 2005, end: 2016
  11. AMITRIPTYLINE [Concomitant]
     Active Substance: AMITRIPTYLINE
  12. SIMVASTATIN. [Concomitant]
     Active Substance: SIMVASTATIN
  13. WARFARIN [Concomitant]
     Active Substance: WARFARIN
  14. NEXIUM [Suspect]
     Active Substance: ESOMEPRAZOLE MAGNESIUM
     Route: 048
     Dates: start: 20130822
  15. AMOX-TR POTASSIUM CLAVULANATE [Concomitant]
  16. JANUVIA [Concomitant]
     Active Substance: SITAGLIPTIN PHOSPHATE
  17. ATENOLOL. [Concomitant]
     Active Substance: ATENOLOL
  18. TORSEMIDE. [Concomitant]
     Active Substance: TORSEMIDE
  19. FLUOXETINE [Concomitant]
     Active Substance: FLUOXETINE HYDROCHLORIDE

REACTIONS (3)
  - Chronic kidney disease [Unknown]
  - Renal failure [Unknown]
  - Rebound acid hypersecretion [Unknown]

NARRATIVE: CASE EVENT DATE: 20181214
